FAERS Safety Report 22632356 (Version 1)
Quarter: 2023Q2

REPORT INFORMATION
  Report Type: Spontaneous
  Country: CA (occurrence: CA)
  Receive Date: 20230623
  Receipt Date: 20230623
  Transmission Date: 20230721
  Serious: Yes (Death)
  Sender: FDA-Public Use
  Company Number: CA-002147023-NVSC2023CA141853

PATIENT
  Age: 77 Year
  Sex: Male

DRUGS (1)
  1. MOXIFLOXACIN [Suspect]
     Active Substance: MOXIFLOXACIN
     Indication: Product used for unknown indication
     Dosage: UNK
     Route: 065

REACTIONS (21)
  - Blood culture negative [Fatal]
  - Blood pressure systolic increased [Fatal]
  - Body temperature increased [Fatal]
  - Culture negative [Fatal]
  - Culture positive [Fatal]
  - Feeling cold [Fatal]
  - Gram stain positive [Fatal]
  - Heart rate decreased [Fatal]
  - Mucous stools [Fatal]
  - Oxygen saturation decreased [Fatal]
  - Productive cough [Fatal]
  - Productive cough [Fatal]
  - Pyrexia [Fatal]
  - Pyrexia [Fatal]
  - Rectal haemorrhage [Fatal]
  - Respiratory rate increased [Fatal]
  - Staphylococcus test positive [Fatal]
  - Product contamination microbial [Fatal]
  - Dyspnoea exertional [Fatal]
  - Haemoglobin decreased [Fatal]
  - Asthenia [Fatal]
